FAERS Safety Report 15847824 (Version 1)
Quarter: 2019Q1

REPORT INFORMATION
  Report Type: Report from Study
  Country: NP (occurrence: NP)
  Receive Date: 20190121
  Receipt Date: 20190121
  Transmission Date: 20190417
  Serious: Yes (Death)
  Sender: FDA-Public Use
  Company Number: PHHY2017NP141067

PATIENT
  Sex: Female

DRUGS (1)
  1. GLIVEC [Suspect]
     Active Substance: IMATINIB MESYLATE
     Indication: CHRONIC MYELOID LEUKAEMIA
     Dosage: 600 MG, UNK (6 X 100 MG)
     Route: 065

REACTIONS (4)
  - Rash pustular [Unknown]
  - Death [Fatal]
  - Abdominal pain upper [Unknown]
  - Pruritus [Unknown]
